FAERS Safety Report 4996589-4 (Version None)
Quarter: 2006Q2

REPORT INFORMATION
  Report Type: 
  Country: None (occurrence: None)
  Receive Date: 20060505
  Receipt Date: 20060426
  Transmission Date: 20061013
  Serious: Yes (Other)
  Sender: FDA-Public Use
  Company Number: 2006057544

PATIENT
  Age: 72 Year
  Sex: Female
  Weight: 98.8842 kg

DRUGS (6)
  1. LYRICA [Suspect]
     Indication: ILL-DEFINED DISORDER
  2. BYETTA [Suspect]
     Indication: DIABETES MELLITUS NON-INSULIN-DEPENDENT
     Dosage: 10 MCG (5 MCG, 2 IN 1 D), SUBCUTANEOUS
     Route: 058
     Dates: start: 20060316
  3. NOVOLOG MIX 70/30 (INSULIN ASPART, PROTAMINE) [Concomitant]
  4. ASPIRIN [Concomitant]
  5. METFORMIN [Concomitant]
  6. INSULIN [Concomitant]

REACTIONS (8)
  - ANOREXIA [None]
  - BLOOD GLUCOSE DECREASED [None]
  - CONFUSIONAL STATE [None]
  - CONSTIPATION [None]
  - DIZZINESS [None]
  - OBSESSIVE THOUGHTS [None]
  - SKIN DISCOLOURATION [None]
  - TREMOR [None]
